FAERS Safety Report 8829994 (Version 1)
Quarter: 2012Q4

REPORT INFORMATION
  Report Type: 
  Country: US (occurrence: US)
  Receive Date: 20121008
  Receipt Date: 20121008
  Transmission Date: 20130627
  Serious: No
  Sender: FDA-Public Use
  Company Number: US-009507513-1210USA002418

PATIENT
  Sex: Female

DRUGS (2)
  1. MIRALAX [Suspect]
     Indication: CONSTIPATION
     Dosage: 8.5 g, qd
     Route: 048
     Dates: start: 201209
  2. MIRALAX [Suspect]
     Indication: MEDICAL OBSERVATION
     Dosage: 17 g, Once
     Route: 048
     Dates: start: 201209

REACTIONS (3)
  - Diarrhoea [Unknown]
  - Frequent bowel movements [Unknown]
  - Underdose [Unknown]
